FAERS Safety Report 16629947 (Version 2)
Quarter: 2019Q3

REPORT INFORMATION
  Report Type: Spontaneous
  Country: BR (occurrence: BR)
  Receive Date: 20190725
  Receipt Date: 20190930
  Transmission Date: 20191004
  Serious: Yes (Other)
  Sender: FDA-Public Use
  Company Number: PHHY2019BR115507

PATIENT
  Age: 77 Year
  Sex: Female

DRUGS (2)
  1. EXELON PATCH [Suspect]
     Active Substance: RIVASTIGMINE
     Indication: MEMORY IMPAIRMENT
     Dosage: 4.6 MG QD (PATCH 5 (CM2), 9 MG RIVASTIGMINE BASE)
     Route: 062
     Dates: start: 201902, end: 20190715
  2. EXELON PATCH [Suspect]
     Active Substance: RIVASTIGMINE
     Dosage: HIGHER DOSE
     Route: 062

REACTIONS (11)
  - Chromaturia [Recovering/Resolving]
  - Hyperhidrosis [Not Recovered/Not Resolved]
  - Tachycardia [Recovered/Resolved]
  - Insomnia [Unknown]
  - Malaise [Unknown]
  - Feeling abnormal [Unknown]
  - Product quality issue [Unknown]
  - Hypertension [Not Recovered/Not Resolved]
  - Urinary tract infection [Recovering/Resolving]
  - Memory impairment [Not Recovered/Not Resolved]
  - Heart rate increased [Recovered/Resolved]

NARRATIVE: CASE EVENT DATE: 20190714
